FAERS Safety Report 8267711-1 (Version None)
Quarter: 2012Q2

REPORT INFORMATION
  Report Type: 
  Country: None (occurrence: None)
  Receive Date: 20120409
  Receipt Date: 20120329
  Transmission Date: 20120825
  Serious: Yes (Hospitalization)
  Sender: FDA-Public Use
  Company Number: ES-ELI_LILLY_AND_COMPANY-ES201203007191

PATIENT
  Sex: Female
  Weight: 90 kg

DRUGS (7)
  1. FORTEO [Suspect]
     Indication: OSTEOPOROSIS
     Dosage: 20 UG, QD
     Route: 058
     Dates: start: 20111118
  2. CANDESARTAN CILEXETIL [Concomitant]
     Indication: HYPERTENSION
     Dosage: 1 DF, QD
     Route: 048
  3. IBERCAL D [Concomitant]
     Indication: OSTEOPOROSIS
     Dosage: 1 DF, QD
     Route: 048
  4. CHLORTHALIDONE [Concomitant]
     Indication: HYPERTENSION
     Dosage: 50 MG, QD
     Route: 048
  5. PRANDIN [Concomitant]
     Indication: DIABETES MELLITUS
     Dosage: 2 MG, QD
     Route: 048
  6. LANTUS [Concomitant]
     Indication: DIABETES MELLITUS
     Dosage: 40 IU, QD
     Route: 058
  7. LERCADIP [Concomitant]
     Indication: HYPERTENSION
     Dosage: 10 MG, QD
     Route: 048

REACTIONS (4)
  - VOMITING [None]
  - DIZZINESS [None]
  - DIARRHOEA [None]
  - ANAEMIA [None]
